FAERS Safety Report 14347274 (Version 1)
Quarter: 2018Q1

REPORT INFORMATION
  Report Type: Spontaneous
  Country: US (occurrence: US)
  Receive Date: 20180102
  Receipt Date: 20180102
  Transmission Date: 20180509
  Serious: Yes (Life-Threatening, Hospitalization)
  Sender: FDA-Public Use
  Company Number: None

PATIENT
  Age: 88 Year
  Sex: Female
  Weight: 69.75 kg

DRUGS (1)
  1. ELIQUIS [Suspect]
     Active Substance: APIXABAN
     Indication: SUPRAVENTRICULAR TACHYCARDIA
     Dates: start: 20150101, end: 20170909

REACTIONS (8)
  - Haemothorax [None]
  - Gastrointestinal haemorrhage [None]
  - Traumatic lung injury [None]
  - Fall [None]
  - Back injury [None]
  - Hypotension [None]
  - Dyspnoea [None]
  - Drug prescribing error [None]

NARRATIVE: CASE EVENT DATE: 20170904
